FAERS Safety Report 7715002-7 (Version None)
Quarter: 2011Q3

REPORT INFORMATION
  Report Type: 
  Country: None (occurrence: None)
  Receive Date: 20110829
  Receipt Date: 20110713
  Transmission Date: 20111222
  Serious: Yes (Other)
  Sender: FDA-Public Use
  Company Number: US-ASTRAZENECA-2011SE41995

PATIENT
  Age: 55 Year
  Sex: Female

DRUGS (3)
  1. HYDROCHLOROTHIAZIDE [Concomitant]
  2. VIMOVO [Suspect]
     Indication: SPONDYLITIS
     Dosage: ONE TABLET 500/20 MG TWICE DAILY
     Route: 048
     Dates: start: 20110401
  3. LISINOPRIL [Concomitant]

REACTIONS (6)
  - IMPAIRED HEALING [None]
  - BOREDOM [None]
  - FATIGUE [None]
  - WRIST FRACTURE [None]
  - INAPPROPRIATE SCHEDULE OF DRUG ADMINISTRATION [None]
  - IMPAIRED WORK ABILITY [None]
